FAERS Safety Report 14308170 (Version 1)
Quarter: 2017Q4

REPORT INFORMATION
  Report Type: Spontaneous
  Country: JP (occurrence: JP)
  Receive Date: 20171220
  Receipt Date: 20171220
  Transmission Date: 20180321
  Serious: Yes (Death)
  Sender: FDA-Public Use
  Company Number: JP-SHIONOGI, INC-2017001473

PATIENT
  Age: 76 Year
  Sex: Female

DRUGS (6)
  1. PANTOSIN [Suspect]
     Active Substance: PANTETHINE
     Indication: CONSTIPATION
     Dosage: 600 MG, QD
     Route: 048
  2. MS CONTIN [Concomitant]
     Active Substance: MORPHINE SULFATE
     Indication: CANCER PAIN
     Dosage: 20 MG, QD
     Route: 048
  3. SENNOSIDE                          /00571901/ [Suspect]
     Active Substance: SENNOSIDES A AND B
     Indication: CONSTIPATION
     Dosage: 24 MG, QD
     Route: 048
  4. SYMPROIC [Suspect]
     Active Substance: NALDEMEDINE
     Indication: CONSTIPATION
     Dosage: 0.2 MG, QD
     Route: 048
     Dates: start: 20170628, end: 201706
  5. MAGMITT [Suspect]
     Active Substance: MAGNESIUM OXIDE
     Indication: CONSTIPATION
     Dosage: 1000 MG, QD
     Route: 048
  6. AMITIZA [Suspect]
     Active Substance: LUBIPROSTONE
     Indication: CONSTIPATION
     Dosage: 48 ?G, QD
     Route: 048

REACTIONS (2)
  - Lung neoplasm malignant [Fatal]
  - Diarrhoea [Unknown]

NARRATIVE: CASE EVENT DATE: 201706
